FAERS Safety Report 7880629 (Version 9)
Quarter: 2013Q1

REPORT INFORMATION
  Report Type: Report from Study
  Country: BE (occurrence: BE)
  Receive Date: 20110331
  Receipt Date: 20130308
  Transmission Date: 20140127
  Serious: Yes (Hospitalization, Other)
  Sender: FDA-Public Use
  Company Number: BE-ABBOTT-11P-013-0713240-00

PATIENT
  Age: 57 Year
  Sex: Male
  Weight: 65 kg

DRUGS (12)
  1. HUMIRA [Suspect]
     Indication: CROHN^S DISEASE
     Dosage: 160 MG (BASELINE)
     Route: 058
     Dates: start: 20080603, end: 20080603
  2. HUMIRA [Suspect]
     Dosage: 80 MG (WEEK 2)
     Route: 058
  3. HUMIRA [Suspect]
     Dates: end: 20110314
  4. HUMIRA [Suspect]
     Route: 058
     Dates: start: 20110328
  5. ATACAND [Concomitant]
     Indication: HYPERTENSION
     Dates: end: 20120710
  6. ENTOCORT [Concomitant]
     Indication: CROHN^S DISEASE
     Dates: start: 20091214, end: 201001
  7. ENTOCORT [Concomitant]
     Dates: start: 201001, end: 20110301
  8. PREDNISONE [Concomitant]
     Indication: CROHN^S DISEASE
  9. AZATHIOPRINE [Concomitant]
     Indication: CROHN^S DISEASE
  10. METHOTREXATE [Concomitant]
     Indication: CROHN^S DISEASE
  11. ZOCOR [Concomitant]
     Indication: PROPHYLAXIS
     Dates: start: 2011, end: 20120710
  12. ASAFLOW [Concomitant]
     Indication: PROPHYLAXIS
     Dates: start: 2011, end: 20120710

REACTIONS (2)
  - Crohn^s disease [Recovered/Resolved]
  - Large intestinal stenosis [Recovered/Resolved]
